FAERS Safety Report 6933760-6 (Version None)
Quarter: 2010Q3

REPORT INFORMATION
  Report Type: 
  Country: None (occurrence: None)
  Receive Date: 20100817
  Receipt Date: 20100812
  Transmission Date: 20110219
  Serious: Yes (Death, Other)
  Sender: FDA-Public Use
  Company Number: 2010SP042173

PATIENT
  Age: 55 Year
  Sex: Male

DRUGS (9)
  1. SAPHRIS [Suspect]
     Indication: BIPOLAR DISORDER
     Dosage: 5 MG;BID;SL 10 MG;BID;SL
     Dates: start: 20100714
  2. SAPHRIS [Suspect]
     Indication: SCHIZOPHRENIA
     Dosage: 5 MG;BID;SL 10 MG;BID;SL
     Dates: start: 20100714
  3. SAPHRIS [Suspect]
     Indication: BIPOLAR DISORDER
     Dosage: 5 MG;BID;SL 10 MG;BID;SL
     Dates: start: 20100729
  4. SAPHRIS [Suspect]
     Indication: SCHIZOPHRENIA
     Dosage: 5 MG;BID;SL 10 MG;BID;SL
     Dates: start: 20100729
  5. SAPHRIS [Suspect]
  6. SAPHRIS [Suspect]
  7. HYDROCODONE (CON.) [Concomitant]
  8. SYNTHROID (CON.) [Concomitant]
  9. DEPAKOTE (CON.) [Concomitant]

REACTIONS (5)
  - AGITATION [None]
  - COMPLETED SUICIDE [None]
  - HALLUCINATION [None]
  - INCORRECT DOSE ADMINISTERED [None]
  - NERVOUSNESS [None]
